FAERS Safety Report 22166138 (Version 1)
Quarter: 2023Q1

REPORT INFORMATION
  Report Type: Spontaneous
  Country: US (occurrence: None)
  Receive Date: 20230331
  Receipt Date: 20230331
  Transmission Date: 20230418
  Serious: Yes (Hospitalization, Disabling)
  Sender: FDA-Public Use
  Company Number: None

PATIENT
  Age: 45 Year
  Sex: Female

DRUGS (1)
  1. LOVENOX [Suspect]
     Active Substance: ENOXAPARIN SODIUM

REACTIONS (6)
  - Spinal cord haematoma [None]
  - Nerve injury [None]
  - Paraplegia [None]
  - Headache [None]
  - Anuria [None]
  - Sensory loss [None]

NARRATIVE: CASE EVENT DATE: 20130924
